FAERS Safety Report 13677415 (Version 2)
Quarter: 2017Q3

REPORT INFORMATION
  Report Type: Spontaneous
  Country: US (occurrence: US)
  Receive Date: 20170622
  Receipt Date: 20170703
  Transmission Date: 20171127
  Serious: No
  Sender: FDA-Public Use
  Company Number: US-PHARMING GROUP N.V.-PHAUS2017000065

PATIENT

DRUGS (3)
  1. FIRAZYR [Concomitant]
     Active Substance: ICATIBANT ACETATE
     Indication: HEREDITARY ANGIOEDEMA
     Dosage: UNK UNK, AS NEEDED
     Route: 065
     Dates: start: 20170611
  2. RUCONEST [Suspect]
     Active Substance: HUMAN C1-ESTERASE INHIBITOR
     Dosage: UNK UNK
     Route: 065
     Dates: start: 20170612
  3. RUCONEST [Suspect]
     Active Substance: HUMAN C1-ESTERASE INHIBITOR
     Indication: HEREDITARY ANGIOEDEMA
     Dosage: 4200 IU, PRN
     Route: 042
     Dates: start: 20170531

REACTIONS (4)
  - Headache [Unknown]
  - Infusion site erythema [Recovered/Resolved]
  - Muscle spasms [Unknown]
  - Constipation [Unknown]

NARRATIVE: CASE EVENT DATE: 20170609
